FAERS Safety Report 7911766-8 (Version None)
Quarter: 2011Q4

REPORT INFORMATION
  Report Type: 
  Country: None (occurrence: None)
  Receive Date: 20111114
  Receipt Date: 20111114
  Transmission Date: 20120403
  Serious: No
  Sender: FDA-Public Use
  Company Number: None

PATIENT
  Age: 50 Year
  Sex: Female
  Weight: 86.182 kg

DRUGS (1)
  1. ENTOCORT EC [Suspect]

REACTIONS (3)
  - EAR PAIN [None]
  - PYREXIA [None]
  - LYMPHADENOPATHY [None]
